FAERS Safety Report 6861438-6 (Version None)
Quarter: 2010Q3

REPORT INFORMATION
  Report Type: 
  Country: None (occurrence: None)
  Receive Date: 20100715
  Receipt Date: 20100630
  Transmission Date: 20110219
  Serious: Yes (Hospitalization)
  Sender: FDA-Public Use
  Company Number: BAP100014

PATIENT
  Age: 82 Year
  Sex: Female

DRUGS (2)
  1. MICONAZOLE [Suspect]
     Indication: ORAL CANDIDIASIS
     Dosage: 50 MG ONCE A DAY BUCCAL
     Route: 002
     Dates: start: 20100501, end: 20100501
  2. ESCITALOPRAM [Concomitant]

REACTIONS (2)
  - DRUG INTERACTION [None]
  - SEROTONIN SYNDROME [None]
